FAERS Safety Report 11445795 (Version 1)
Quarter: 2015Q3

REPORT INFORMATION
  Report Type: Spontaneous
  Country: US (occurrence: None)
  Receive Date: 20150828
  Receipt Date: 20150828
  Transmission Date: 20151125
  Serious: Yes (Hospitalization)
  Sender: FDA-Public Use
  Company Number: 1713747-2015-999277

PATIENT
  Age: 70 Year
  Sex: Female
  Weight: 67.8 kg

DRUGS (27)
  1. FUROSEMIDE. [Concomitant]
     Active Substance: FUROSEMIDE
  2. OXYCODONE [Concomitant]
     Active Substance: OXYCODONE
  3. GABAPETIN [Concomitant]
     Active Substance: GABAPENTIN
  4. KLOR-CON [Concomitant]
     Active Substance: POTASSIUM CHLORIDE
  5. ACETAMINOPHEN. [Concomitant]
     Active Substance: ACETAMINOPHEN
  6. DELFLEX [Suspect]
     Active Substance: CALCIUM CHLORIDE\DEXTROSE MONOHYDRATE\MAGNESIUM CHLORIDE\SODIUM CHLORIDE\SODIUM LACTATE
     Indication: PERITONEAL DIALYSIS
     Route: 033
  7. LIBERTY CYCLER [Concomitant]
     Active Substance: DEVICE
  8. LIBERTY CYCLER SET [Concomitant]
     Active Substance: DEVICE
  9. MIRAPEX [Concomitant]
     Active Substance: PRAMIPEXOLE DIHYDROCHLORIDE
  10. PREDNISOLONE EYEDROPS [Concomitant]
  11. LEVOTHYROXINE. [Concomitant]
     Active Substance: LEVOTHYROXINE
  12. AQUAPHOR OINTMENT [Concomitant]
     Active Substance: ALCOHOL\LIGHT MINERAL OIL\PETROLATUM
  13. DULOXETINE. [Concomitant]
     Active Substance: DULOXETINE
  14. CALCITRIOL. [Concomitant]
     Active Substance: CALCITRIOL
  15. PREVACID [Concomitant]
     Active Substance: LANSOPRAZOLE
  16. RENVELA [Concomitant]
     Active Substance: SEVELAMER CARBONATE
  17. NEPHROCAPS [Concomitant]
     Active Substance: ASCORBIC ACID\BIOTIN\CYANOCOBALAMIN\FOLIC ACID\NIACIN\PANTOTHENIC ACID\PYRIDOXINE\RIBOFLAVIN\THIAMINE
  18. ALLOPURINOL. [Concomitant]
     Active Substance: ALLOPURINOL
  19. PHOSLO [Concomitant]
     Active Substance: CALCIUM ACETATE
  20. CRESTOR [Concomitant]
     Active Substance: ROSUVASTATIN CALCIUM
  21. DURAGESTIC PATCHES [Concomitant]
  22. LORAZEPAM. [Concomitant]
     Active Substance: LORAZEPAM
  23. VANCOMYCIN [Concomitant]
     Active Substance: VANCOMYCIN
  24. GENTAMICIN. [Concomitant]
     Active Substance: GENTAMICIN
  25. CLOPIDORGREL [Concomitant]
  26. METOLAZONE. [Concomitant]
     Active Substance: METOLAZONE
  27. METOPROLOL [Concomitant]
     Active Substance: METOPROLOL

REACTIONS (2)
  - Peritonitis [None]
  - Hypervolaemia [None]

NARRATIVE: CASE EVENT DATE: 20150620
